FAERS Safety Report 11249521 (Version 1)
Quarter: 2015Q3

REPORT INFORMATION
  Report Type: Spontaneous
  Country: US (occurrence: US)
  Receive Date: 20150708
  Receipt Date: 20150708
  Transmission Date: 20151125
  Serious: Yes (Hospitalization, Other)
  Sender: FDA-Public Use
  Company Number: US-ELI_LILLY_AND_COMPANY-US201506009776

PATIENT
  Sex: Female

DRUGS (15)
  1. PROZAC [Suspect]
     Active Substance: FLUOXETINE HYDROCHLORIDE
     Dosage: 20 MG, EACH MORNING
     Route: 065
     Dates: start: 2000
  2. CYMBALTA [Suspect]
     Active Substance: DULOXETINE HYDROCHLORIDE
     Indication: DEPRESSION
     Dosage: UNK, UNKNOWN
     Route: 065
  3. LEVOTHYROXINE. [Concomitant]
     Active Substance: LEVOTHYROXINE
     Dosage: UNK, UNKNOWN
     Route: 065
  4. PROZAC [Suspect]
     Active Substance: FLUOXETINE HYDROCHLORIDE
     Dosage: 20 MG, EACH MORNING
     Route: 065
  5. PROZAC [Suspect]
     Active Substance: FLUOXETINE HYDROCHLORIDE
     Dosage: 40 MG, EACH NIGHT
     Route: 065
  6. PROZAC [Suspect]
     Active Substance: FLUOXETINE HYDROCHLORIDE
     Dosage: 40 MG, AT NIGHT
     Route: 065
     Dates: start: 2000
  7. FLUOXETINE [Suspect]
     Active Substance: FLUOXETINE\FLUOXETINE HYDROCHLORIDE
     Dosage: 40 MG, AT NIGHT
     Route: 065
  8. AMLODIPINE [Concomitant]
     Active Substance: AMLODIPINE BESYLATE
     Dosage: UNK, UNKNOWN
     Route: 065
  9. LYRICA [Concomitant]
     Active Substance: PREGABALIN
     Dosage: UNK, UNKNOWN
     Route: 065
  10. LASIX [Concomitant]
     Active Substance: FUROSEMIDE
     Dosage: UNK, UNKNOWN
     Route: 065
  11. LOVASTATIN. [Concomitant]
     Active Substance: LOVASTATIN
     Dosage: UNK, UNKNOWN
     Route: 065
  12. FLUOXETINE [Suspect]
     Active Substance: FLUOXETINE\FLUOXETINE HYDROCHLORIDE
     Indication: DEPRESSION
     Dosage: 20 MG, EACH MORNING
     Route: 065
     Dates: start: 2000
  13. METOPROLOL [Concomitant]
     Active Substance: METOPROLOL
     Dosage: UNK, UNKNOWN
     Route: 065
  14. GABAPENTIN. [Concomitant]
     Active Substance: GABAPENTIN
     Dosage: UNK, UNKNOWN
     Route: 065
  15. LORTAB [Concomitant]
     Active Substance: ACETAMINOPHEN\HYDROCODONE BITARTRATE
     Dosage: UNK, UNKNOWN
     Route: 065

REACTIONS (12)
  - Hypersensitivity [Unknown]
  - Diabetes mellitus [Unknown]
  - Weight increased [Unknown]
  - Device breakage [Unknown]
  - Blood potassium increased [Unknown]
  - Renal failure [Unknown]
  - Anaemia [Unknown]
  - Intestinal obstruction [Unknown]
  - Vomiting projectile [Unknown]
  - Fall [Unknown]
  - Dehydration [Unknown]
  - Muscular weakness [Unknown]

NARRATIVE: CASE EVENT DATE: 2006
